FAERS Safety Report 8968088 (Version 2)
Quarter: 2014Q2

REPORT INFORMATION
  Report Type: Spontaneous
  Country: US (occurrence: US)
  Receive Date: 20121218
  Receipt Date: 20131024
  Transmission Date: 20141212
  Serious: No
  Sender: FDA-Public Use
  Company Number: US-PFIZER INC-2012317341

PATIENT
  Sex: 0

DRUGS (3)
  1. PHENYTOIN SODIUM [Suspect]
     Dosage: 300 MG, 1X/DAY (IN THE MORNING)
  2. DILANTIN [Suspect]
     Dosage: 50 MG, 1X/DAY (IN THE MORNING)
  3. METHAMPHETAMINE [Suspect]

REACTIONS (1)
  - Drug level increased [Unknown]
